FAERS Safety Report 21686953 (Version 2)
Quarter: 2022Q4

REPORT INFORMATION
  Report Type: Spontaneous
  Country: JP (occurrence: JP)
  Receive Date: 20221206
  Receipt Date: 20221222
  Transmission Date: 20230113
  Serious: No
  Sender: FDA-Public Use
  Company Number: JP-ASTELLAS-2022JP013967

PATIENT
  Age: 74 Year
  Sex: Female

DRUGS (4)
  1. PADCEV [Suspect]
     Active Substance: ENFORTUMAB VEDOTIN-EJFV
     Indication: Bladder cancer
     Route: 041
     Dates: start: 20220908, end: 20220915
  2. HERBAL NOS [Concomitant]
     Active Substance: HERBALS
     Indication: Decreased appetite
     Dosage: UNK UNK, UNKNOWN FREQ.
     Route: 065
     Dates: start: 20220920
  3. Azunol [Concomitant]
     Indication: Herpes zoster
     Dosage: UNK UNK, UNKNOWN FREQ.
     Route: 065
     Dates: start: 20220922
  4. BACITRACIN\NEOMYCIN SULFATE [Concomitant]
     Active Substance: BACITRACIN\NEOMYCIN SULFATE
     Indication: Herpes zoster
     Dosage: UNK UNK, UNKNOWN FREQ.
     Route: 065
     Dates: start: 20220922

REACTIONS (4)
  - Blood albumin decreased [Not Recovered/Not Resolved]
  - Herpes zoster [Not Recovered/Not Resolved]
  - Decreased appetite [Not Recovered/Not Resolved]
  - Platelet count decreased [Not Recovered/Not Resolved]

NARRATIVE: CASE EVENT DATE: 20220908
